FAERS Safety Report 14510615 (Version 1)
Quarter: 2018Q1

REPORT INFORMATION
  Report Type: Spontaneous
  Country: US (occurrence: US)
  Receive Date: 20180208
  Receipt Date: 20180208
  Transmission Date: 20180509
  Serious: No
  Sender: FDA-Public Use
  Company Number: None

PATIENT
  Age: 53 Year
  Sex: Male
  Weight: 90.5 kg

DRUGS (1)
  1. INDOMETHACIN. [Suspect]
     Active Substance: INDOMETHACIN
     Indication: GOUT
     Route: 048
     Dates: start: 20150823, end: 20150824

REACTIONS (4)
  - Acute kidney injury [None]
  - Hypovolaemia [None]
  - Melaena [None]
  - Gastrointestinal tract irritation [None]

NARRATIVE: CASE EVENT DATE: 20150824
